FAERS Safety Report 17985012 (Version 1)
Quarter: 2020Q3

REPORT INFORMATION
  Report Type: Spontaneous
  Country: US (occurrence: US)
  Receive Date: 20200706
  Receipt Date: 20200706
  Transmission Date: 20201103
  Serious: Yes (Life-Threatening, Other)
  Sender: FDA-Public Use
  Company Number: US-FRESENIUS KABI-FK202006683

PATIENT
  Age: 72 Year
  Sex: Male

DRUGS (1)
  1. HEPARIN (MANUFACTURER UNKNOWN) [Suspect]
     Active Substance: HEPARIN SODIUM
     Indication: ANTICOAGULANT THERAPY
     Dosage: UNKNOWN
     Route: 042

REACTIONS (4)
  - Adrenal haemorrhage [Recovered/Resolved]
  - Shock [Recovered/Resolved]
  - Heparin-induced thrombocytopenia [Recovered/Resolved]
  - Primary adrenal insufficiency [Recovered/Resolved]
